FAERS Safety Report 11833909 (Version 1)
Quarter: 2015Q4

REPORT INFORMATION
  Report Type: Spontaneous
  Country: US (occurrence: US)
  Receive Date: 20151214
  Receipt Date: 20151214
  Transmission Date: 20160305
  Serious: No
  Sender: FDA-Public Use
  Company Number: US-BAYER-2015-488319

PATIENT
  Age: 80 Year
  Sex: Male
  Weight: 88.44 kg

DRUGS (1)
  1. CLARITIN [Suspect]
     Active Substance: LORATADINE
     Dosage: 1 DF, UNK
     Route: 048

REACTIONS (2)
  - Product use issue [None]
  - Blood pressure fluctuation [Unknown]
